FAERS Safety Report 23604579 (Version 1)
Quarter: 2024Q1

REPORT INFORMATION
  Report Type: Spontaneous
  Country: US (occurrence: US)
  Receive Date: 20240307
  Receipt Date: 20240307
  Transmission Date: 20240409
  Serious: Yes (Hospitalization, Other)
  Sender: FDA-Public Use
  Company Number: US-GLAXOSMITHKLINE-US2024AMR028371

PATIENT

DRUGS (1)
  1. IMITREX [Suspect]
     Active Substance: SUMATRIPTAN SUCCINATE
     Indication: Product used for unknown indication
     Dosage: 20 MG, 1 CARTON (6 UNITS)

REACTIONS (13)
  - Hospitalisation [Unknown]
  - Coma [Unknown]
  - Hemiplegia [Unknown]
  - Cerebrovascular accident [Unknown]
  - Hypoaesthesia [Unknown]
  - Cardiac disorder [Unknown]
  - Blood pressure abnormal [Unknown]
  - Hemiplegic migraine [Unknown]
  - Fall [Unknown]
  - Hand deformity [Unknown]
  - Regurgitation [Unknown]
  - Weight decreased [Unknown]
  - Hiatus hernia [Unknown]
